FAERS Safety Report 13433267 (Version 1)
Quarter: 2017Q2

REPORT INFORMATION
  Report Type: Spontaneous
  Country: IE (occurrence: IE)
  Receive Date: 20170412
  Receipt Date: 20170412
  Transmission Date: 20170830
  Serious: Yes (Hospitalization, Other)
  Sender: FDA-Public Use
  Company Number: IE-IMPAX LABORATORIES, INC-2017-IPXL-00877

PATIENT
  Age: 74 Year
  Sex: Male

DRUGS (2)
  1. DIGOXIN. [Suspect]
     Active Substance: DIGOXIN
     Indication: PRODUCT USED FOR UNKNOWN INDICATION
     Dosage: UNK
     Route: 065
  2. WARFARIN [Concomitant]
     Active Substance: WARFARIN
     Indication: ATRIAL FIBRILLATION
     Dosage: UNK
     Route: 065

REACTIONS (7)
  - Coagulopathy [Unknown]
  - Aortic stenosis [Unknown]
  - Toxicity to various agents [Unknown]
  - Cardiac failure [Unknown]
  - Acute kidney injury [Unknown]
  - Confusional state [Unknown]
  - Pleural effusion [Unknown]
